FAERS Safety Report 12995662 (Version 2)
Quarter: 2016Q4

REPORT INFORMATION
  Report Type: Spontaneous
  Country: US (occurrence: US)
  Receive Date: 20161202
  Receipt Date: 20161209
  Transmission Date: 20170207
  Serious: Yes (Death)
  Sender: FDA-Public Use
  Company Number: US-ELI_LILLY_AND_COMPANY-US201612000728

PATIENT
  Age: 58 Year

DRUGS (3)
  1. ERBITUX [Suspect]
     Active Substance: CETUXIMAB
     Indication: PRODUCT USED FOR UNKNOWN INDICATION
     Dosage: UNK UNK, WEEKLY (1/W)
     Route: 065
  2. IRINOTECAN [Suspect]
     Active Substance: IRINOTECAN
     Indication: PRODUCT USED FOR UNKNOWN INDICATION
     Dosage: 180 MG/M2, 2/M
     Route: 042
  3. SERIBANTUMAB [Suspect]
     Active Substance: SERIBANTUMAB
     Indication: PRODUCT USED FOR UNKNOWN INDICATION
     Dosage: UNK, WEEKLY (1/W)
     Route: 065

REACTIONS (5)
  - Neutropenia [Fatal]
  - Urinary tract infection [Fatal]
  - Respiratory failure [Fatal]
  - Cardiac arrest [Fatal]
  - Diarrhoea [Fatal]
